FAERS Safety Report 7345068-8 (Version None)
Quarter: 2011Q1

REPORT INFORMATION
  Report Type: 
  Country: None (occurrence: None)
  Receive Date: 20110310
  Receipt Date: 20110228
  Transmission Date: 20110831
  Serious: No
  Sender: FDA-Public Use
  Company Number: US-ELI_LILLY_AND_COMPANY-US201005004889

PATIENT
  Sex: Female
  Weight: 72.562 kg

DRUGS (8)
  1. LASIX [Concomitant]
     Dosage: 40 MG, UNK
  2. SOMA [Concomitant]
     Dosage: 350 MG, UNK
  3. DARVOCET [Concomitant]
  4. FORTEO [Suspect]
     Indication: OSTEOPOROSIS
     Dosage: 20 UG, DAILY (1/D)
     Route: 058
     Dates: start: 20100401
  5. LORTAB [Concomitant]
     Dosage: 7.5 MG, UNK
  6. NEURONTIN [Concomitant]
     Dosage: 100 MG, UNK
  7. AMBIEN [Concomitant]
  8. PRISTIQ [Concomitant]
     Dosage: 100 MG, UNK

REACTIONS (2)
  - BONE PAIN [None]
  - ARTHRALGIA [None]
